FAERS Safety Report 21564805 (Version 1)
Quarter: 2022Q4

REPORT INFORMATION
  Report Type: Spontaneous
  Country: US (occurrence: US)
  Receive Date: 20221108
  Receipt Date: 20221108
  Transmission Date: 20230113
  Serious: No
  Sender: FDA-Public Use
  Company Number: US-drreddys-SPO/USA/22/0156616

PATIENT
  Age: 66 Year
  Sex: Male

DRUGS (1)
  1. ACCUTANE [Suspect]
     Active Substance: ISOTRETINOIN
     Indication: Rosacea
     Dosage: A COUPLE OF TIMES A WEEK

REACTIONS (2)
  - Adverse event [Unknown]
  - Product use in unapproved indication [Unknown]
